FAERS Safety Report 18778198 (Version 1)
Quarter: 2021Q1

REPORT INFORMATION
  Report Type: Report from Study
  Country: ZA (occurrence: ZA)
  Receive Date: 20210123
  Receipt Date: 20210123
  Transmission Date: 20210419
  Serious: Yes (Death, Other)
  Sender: FDA-Public Use
  Company Number: ZA-ACCORD-215331

PATIENT
  Age: 42 Year
  Sex: Male

DRUGS (6)
  1. CLOPIDOGREL [Suspect]
     Active Substance: CLOPIDOGREL BISULFATE
     Indication: MYOCARDIAL INFARCTION
  2. STREPTOKINASE/STREPTOKINASE/ACYLATED DERIVA [Suspect]
     Active Substance: STREPTOKINASE
     Indication: MYOCARDIAL INFARCTION
     Dosage: 1.5 MU
  3. ENOXAPARIN [Suspect]
     Active Substance: ENOXAPARIN
     Indication: MYOCARDIAL INFARCTION
  4. SIMVASTATIN. [Concomitant]
     Active Substance: SIMVASTATIN
     Indication: MYOCARDIAL INFARCTION
  5. ASPIRIN. [Suspect]
     Active Substance: ASPIRIN
     Indication: MYOCARDIAL INFARCTION
  6. INSULIN [Concomitant]
     Active Substance: INSULIN NOS

REACTIONS (1)
  - Subarachnoid haemorrhage [Fatal]
